FAERS Safety Report 9467792 (Version 1)
Quarter: 2013Q3

REPORT INFORMATION
  Report Type: Spontaneous
  Country: US (occurrence: None)
  Receive Date: 20130819
  Receipt Date: 20130819
  Transmission Date: 20140515
  Serious: No
  Sender: FDA-Public Use
  Company Number: None

PATIENT
  Age: 65 Year
  Sex: Male
  Weight: 84.37 kg

DRUGS (1)
  1. CREST PRO-HEALTH RINSE [Suspect]

REACTIONS (3)
  - Ageusia [None]
  - Paraesthesia [None]
  - Hypoaesthesia [None]
